FAERS Safety Report 9720663 (Version 2)
Quarter: 2013Q4

REPORT INFORMATION
  Report Type: Report from Study
  Country: BR (occurrence: BR)
  Receive Date: 20131129
  Receipt Date: 20131226
  Transmission Date: 20140711
  Serious: Yes (Hospitalization, Other)
  Sender: FDA-Public Use
  Company Number: PHHY2013BR138051

PATIENT
  Sex: Female

DRUGS (3)
  1. DIOVAN AMLO FIX [Suspect]
     Indication: HYPERTENSION
     Dosage: 1 DF (160MG VALS/ 5MG AMLO), DAILY
     Route: 048
     Dates: start: 20090929
  2. DIOVAN AMLO FIX [Suspect]
     Dosage: 1 DF (160MG VALS/ 5MG AMLO), ONCE IN THE MORNING
  3. POLIVITAMINICO [Concomitant]
     Dosage: 50 MG, UNK

REACTIONS (3)
  - Pneumonia [Recovered/Resolved]
  - Nosocomial infection [Recovered/Resolved]
  - Gait disturbance [Recovered/Resolved]
